FAERS Safety Report 9003415 (Version 1)
Quarter: 2013Q1

REPORT INFORMATION
  Report Type: Spontaneous
  Country: US (occurrence: US)
  Receive Date: 20130108
  Receipt Date: 20130108
  Transmission Date: 20140127
  Serious: Yes (Death, Hospitalization)
  Sender: FDA-Public Use
  Company Number: US-GLAXOSMITHKLINE-A1007129A

PATIENT
  Age: 95 Year
  Sex: Female

DRUGS (7)
  1. ADVAIR [Suspect]
     Indication: CHRONIC OBSTRUCTIVE PULMONARY DISEASE
     Dosage: 1PUFF TWICE PER DAY
     Route: 055
  2. PLAVIX [Concomitant]
  3. NEXIUM [Concomitant]
  4. DIOVAN [Concomitant]
  5. AMLODIPINE [Concomitant]
  6. HYDROCODONE [Concomitant]
  7. PHENYTOIN [Concomitant]

REACTIONS (3)
  - Death [Fatal]
  - Pyrexia [Unknown]
  - Dyspnoea [Unknown]
